FAERS Safety Report 9645721 (Version 3)
Quarter: 2013Q4

REPORT INFORMATION
  Report Type: Other
  Country: IT (occurrence: IT)
  Receive Date: 20131025
  Receipt Date: 20131220
  Transmission Date: 20140711
  Serious: Yes (Hospitalization)
  Sender: FDA-Public Use
  Company Number: IT-TAKEDA-2013TEU001584

PATIENT
  Age: 78 Year
  Sex: Female

DRUGS (7)
  1. ACTOS [Suspect]
     Indication: DIABETES MELLITUS
     Dosage: 1 DF, QD
     Route: 048
     Dates: start: 20131010, end: 20131015
  2. GLICLAZIDE [Suspect]
     Indication: DIABETES MELLITUS
     Dosage: 240 MG, QD
     Route: 048
     Dates: start: 20131010, end: 20131015
  3. GLICLAZIDE [Suspect]
     Dosage: 240 MG, TID
     Route: 048
     Dates: start: 20131016
  4. METHOTREXATE [Concomitant]
     Dosage: 10 MG, UNK
     Route: 042
  5. ACEDIUR                            /00729601/ [Concomitant]
  6. DELTACORTENE [Concomitant]
     Dosage: 6.12 MG, UNK
     Route: 048
  7. FOLINA                             /00024201/ [Concomitant]
     Dosage: 1 DF, UNK
     Route: 048

REACTIONS (2)
  - Hypoglycaemia [Recovered/Resolved]
  - Sopor [Recovered/Resolved]
